FAERS Safety Report 4478871-2 (Version None)
Quarter: 2004Q4

REPORT INFORMATION
  Report Type: 
  Country: None (occurrence: None)
  Receive Date: 20041014
  Receipt Date: 20041001
  Transmission Date: 20050328
  Serious: Yes (Other)
  Sender: FDA-Public Use
  Company Number: MEDI-0002280

PATIENT
  Age: 3 Month
  Sex: Female
  Weight: 1.68 kg

DRUGS (4)
  1. SYNAGIS [Suspect]
     Indication: ANTIVIRAL PROPHYLAXIS
     Dosage: 15 MG, 1 IN 30 D, INTRAMUSCULAR
     Route: 030
     Dates: start: 20040814, end: 20040909
  2. SYNAGIS [Suspect]
     Indication: PREMATURE BABY
     Dosage: 15 MG, 1 IN 30 D, INTRAMUSCULAR
     Route: 030
     Dates: start: 20040814, end: 20040909
  3. SYNAGIS [Suspect]
     Indication: ANTIVIRAL PROPHYLAXIS
     Dosage: 15 MG, 1 IN 30 D, INTRAMUSCULAR
     Route: 030
     Dates: start: 20040814
  4. SYNAGIS [Suspect]
     Indication: PREMATURE BABY
     Dosage: 15 MG, 1 IN 30 D, INTRAMUSCULAR
     Route: 030
     Dates: start: 20040814

REACTIONS (2)
  - HEPATITIS [None]
  - JAUNDICE [None]
